FAERS Safety Report 7829959-7 (Version None)
Quarter: 2011Q4

REPORT INFORMATION
  Report Type: 
  Country: None (occurrence: None)
  Receive Date: 20111021
  Receipt Date: 20110930
  Transmission Date: 20120403
  Serious: Yes (Life-Threatening, Hospitalization, Disabling)
  Sender: FDA-Public Use
  Company Number: US-BAYER-2011-020058

PATIENT
  Age: 23 Year
  Sex: Female
  Weight: 49 kg

DRUGS (7)
  1. YASMIN [Suspect]
     Dosage: UNK
     Route: 048
     Dates: start: 20080101, end: 20080801
  2. GARDASIL [Concomitant]
     Indication: UNEVALUABLE EVENT
  3. ACETYLSALICYLIC ACID SRT [Concomitant]
  4. YASMIN [Suspect]
     Indication: CONTRACEPTION
     Dosage: UNK
     Route: 048
     Dates: start: 20060101, end: 20070101
  5. BACLOFEN [Concomitant]
  6. CLINDAMYCIN [Concomitant]
     Indication: ACNE
     Dosage: UNK
     Dates: start: 20040101, end: 20100101
  7. DROSPIRENONE AND ETHINYL ESTRADIOL [Suspect]
     Indication: CONTRACEPTION
     Dosage: UNK
     Route: 048
     Dates: start: 20080901, end: 20081201

REACTIONS (7)
  - QUADRIPLEGIA [None]
  - THROMBOSIS [None]
  - PAIN [None]
  - DEPRESSION [None]
  - INJURY [None]
  - SPINAL CORD INFARCTION [None]
  - ANXIETY [None]
